FAERS Safety Report 6766145-6 (Version None)
Quarter: 2010Q2

REPORT INFORMATION
  Report Type: 
  Country: None (occurrence: None)
  Receive Date: 20100611
  Receipt Date: 20100607
  Transmission Date: 20101027
  Serious: Yes (Hospitalization, Other)
  Sender: FDA-Public Use
  Company Number: US-ROXANE LABORATORIES, INC.-2010-RO-00688RO

PATIENT
  Age: 17 Year
  Sex: Male

DRUGS (14)
  1. PREDNISONE [Suspect]
     Indication: COLITIS ULCERATIVE
     Dosage: 80 MG
  2. PREDNISONE [Suspect]
     Dosage: 60 MG
  3. MERCAPTOPURINE [Suspect]
     Indication: COLITIS ULCERATIVE
     Dosage: 75 MG
  4. MESALAMINE [Suspect]
     Indication: COLITIS ULCERATIVE
     Dosage: 1.2 G
  5. MESALAMINE [Suspect]
     Dosage: 800 MG
  6. INFLIXIMAB [Suspect]
     Indication: COLITIS ULCERATIVE
  7. MEROPENEM [Suspect]
     Indication: MENINGITIS
     Dosage: 500 MG
  8. MEROPENEM [Suspect]
     Indication: LISTERIOSIS
     Dosage: 3000 MG
  9. MEROPENEM [Suspect]
     Dosage: 6000 MG
  10. METHYLPREDNISOLONE [Suspect]
     Dosage: 88 MG
  11. GENTAMICIN [Suspect]
     Indication: MENINGITIS
     Dosage: 300 MG
  12. GENTAMICIN [Suspect]
     Indication: LISTERIOSIS
  13. RIFAMPIN [Suspect]
     Indication: MENINGITIS
     Dosage: 600 MG
  14. RIFAMPIN [Suspect]
     Indication: LISTERIOSIS

REACTIONS (4)
  - DRUG INEFFECTIVE [None]
  - LISTERIOSIS [None]
  - MENINGITIS [None]
  - THERAPEUTIC AGENT TOXICITY [None]
